FAERS Safety Report 7244632-4 (Version None)
Quarter: 2011Q1

REPORT INFORMATION
  Report Type: 
  Country: None (occurrence: None)
  Receive Date: 20110125
  Receipt Date: 20110120
  Transmission Date: 20110831
  Serious: Yes (Other)
  Sender: FDA-Public Use
  Company Number: FI-MERCK-1101FIN00019

PATIENT
  Age: 85 Year
  Sex: Male

DRUGS (6)
  1. PREDNISOLONE [Concomitant]
     Route: 048
  2. FOSAMAX [Suspect]
     Indication: OSTEOPOROSIS
     Route: 048
     Dates: start: 20050101, end: 20101230
  3. ESCITALOPRAM OXALATE [Concomitant]
     Route: 048
  4. CELECOXIB [Concomitant]
     Route: 048
  5. TOLTERODINE TARTRATE [Concomitant]
     Route: 048
  6. PROPRANOLOL HYDROCHLORIDE [Concomitant]
     Route: 048

REACTIONS (2)
  - ARTHRALGIA [None]
  - FEMUR FRACTURE [None]
